FAERS Safety Report 5113039-8 (Version None)
Quarter: 2006Q3

REPORT INFORMATION
  Report Type: 
  Country: None (occurrence: None)
  Receive Date: 20060922
  Receipt Date: 20060914
  Transmission Date: 20061208
  Serious: Yes (Other)
  Sender: FDA-Public Use
  Company Number: FR-BOEHRINGER INGELHEIM PHARMACEUTICALS, INC.-2006-DE-04953GD

PATIENT
  Sex: Male

DRUGS (7)
  1. TIPRANAVIR [Suspect]
     Indication: HIV INFECTION
  2. STAVUDINE [Suspect]
     Indication: HIV INFECTION
  3. LAMIVUDINE [Suspect]
     Indication: HIV INFECTION
  4. AMPRENAVIR [Suspect]
     Indication: HIV INFECTION
  5. RITONAVIR [Suspect]
     Indication: HIV INFECTION
  6. ENFUVIRTIDE [Suspect]
     Indication: HIV INFECTION
  7. FOSCARNET [Suspect]
     Indication: HIV INFECTION
     Dosage: 5 G IV TWICE DAILY ON TWO CONSECUTIVE DAYS PER WEEK
     Route: 042

REACTIONS (4)
  - DRUG RESISTANCE [None]
  - IMMUNODEFICIENCY [None]
  - MULTIPLE-DRUG RESISTANCE [None]
  - VIRAL MUTATION IDENTIFIED [None]
